FAERS Safety Report 6870735-X (Version None)
Quarter: 2010Q3

REPORT INFORMATION
  Report Type: 
  Country: None (occurrence: None)
  Receive Date: 20100723
  Receipt Date: 20100713
  Transmission Date: 20110219
  Serious: Yes (Other)
  Sender: FDA-Public Use
  Company Number: US-BAYER-201025164NA

PATIENT
  Age: 33 Year
  Sex: Female
  Weight: 79 kg

DRUGS (4)
  1. MIRENA [Suspect]
     Indication: CONTRACEPTION
     Dosage: FREQUENCY:CONTINUOUS
     Route: 015
     Dates: end: 20100316
  2. MIRENA [Suspect]
     Dosage: FREQUENCY:CONTINUOUS
     Route: 015
     Dates: start: 20100316, end: 20100525
  3. WELLBUTRIN [Concomitant]
     Indication: ANXIETY
     Route: 048
  4. ROBAXIN [Concomitant]
     Indication: TEMPOROMANDIBULAR JOINT SYNDROME

REACTIONS (4)
  - ABDOMINAL PAIN [None]
  - AMENORRHOEA [None]
  - BACK PAIN [None]
  - DEVICE DISLOCATION [None]
